FAERS Safety Report 7002106-X (Version None)
Quarter: 2010Q3

REPORT INFORMATION
  Report Type: 
  Country: None (occurrence: None)
  Receive Date: 20100920
  Receipt Date: 20071001
  Transmission Date: 20110219
  Serious: Yes (Other)
  Sender: FDA-Public Use
  Company Number: US-ASTRAZENECA-2006UW22395

PATIENT
  Sex: Female
  Weight: 90.7 kg

DRUGS (15)
  1. SEROQUEL [Suspect]
     Indication: BIPOLAR DISORDER
     Route: 048
     Dates: start: 20000101
  2. SEROQUEL [Suspect]
     Indication: DEPRESSION
     Route: 048
     Dates: start: 20000101
  3. SEROQUEL [Suspect]
     Dosage: 25-200 MG
     Route: 048
     Dates: start: 20030613
  4. SEROQUEL [Suspect]
     Dosage: 25-200 MG
     Route: 048
     Dates: start: 20030613
  5. RISPERIDONE [Concomitant]
     Indication: BIPOLAR DISORDER
  6. RISPERIDONE [Concomitant]
     Route: 048
     Dates: start: 20060509
  7. DIAZEPAM [Concomitant]
     Indication: ANXIETY
     Route: 048
     Dates: start: 20060509
  8. DIAZEPAM [Concomitant]
     Indication: INSOMNIA
     Route: 048
     Dates: start: 20060509
  9. EFFEXOR XR [Concomitant]
     Dosage: 75-300 MG
     Route: 048
     Dates: start: 20030123
  10. GEODON [Concomitant]
     Dosage: 160
     Dates: start: 20070706
  11. LORAZEPAM [Concomitant]
     Dosage: 1-5 MG
     Dates: start: 20070706
  12. LAMICTAL [Concomitant]
     Dates: start: 20051116
  13. KLONOPIN [Concomitant]
     Dates: start: 20051116
  14. TOPAMAX [Concomitant]
     Route: 048
     Dates: start: 20030123
  15. TRILEPTAL [Concomitant]
     Route: 048
     Dates: start: 20000613

REACTIONS (2)
  - HYPERGLYCAEMIA [None]
  - PANCREATITIS [None]
